FAERS Safety Report 7285830-3 (Version None)
Quarter: 2011Q1

REPORT INFORMATION
  Report Type: 
  Country: None (occurrence: None)
  Receive Date: 20110210
  Receipt Date: 20110203
  Transmission Date: 20110831
  Serious: Yes (Hospitalization)
  Sender: FDA-Public Use
  Company Number: FR-BRISTOL-MYERS SQUIBB COMPANY-15240617

PATIENT
  Age: 4 Month
  Sex: Male
  Weight: 6 kg

DRUGS (10)
  1. ACETAMINOPHEN [Suspect]
     Route: 064
  2. BRISTOPEN [Suspect]
     Indication: ANTIBIOTIC PROPHYLAXIS
     Route: 048
     Dates: start: 20100701, end: 20100719
  3. AMOXICILLIN AND CLAVULANATE POTASSIUM [Suspect]
     Indication: SUPERINFECTION
     Dosage: 1DF=100 MG/12.5 MG/ML(AMOXICILLIN/CLAVULANIC ACID)  1 INTAKE PER KG THREE TIMES DAILY
     Route: 048
     Dates: start: 20100726, end: 20100729
  4. POLARAMINE [Concomitant]
     Indication: IMMUNISATION
     Dates: start: 20100720, end: 20100724
  5. ZOVIRAX [Concomitant]
     Indication: HERPES SIMPLEX
     Route: 048
     Dates: start: 20100724
  6. UVEDOSE [Suspect]
     Route: 064
  7. NETROMYCIN [Suspect]
  8. AMOXICILLIN [Suspect]
     Route: 064
  9. HELICIDINE [Suspect]
     Route: 064
     Dates: start: 20091102
  10. PREVENAR [Concomitant]
     Indication: PNEUMOCOCCAL IMMUNISATION
     Dosage: SECOND DOSE

REACTIONS (2)
  - KAPOSI'S VARICELLIFORM ERUPTION [None]
  - EOSINOPHILIA [None]
